FAERS Safety Report 12068187 (Version 1)
Quarter: 2016Q1

REPORT INFORMATION
  Report Type: Spontaneous
  Country: US (occurrence: US)
  Receive Date: 20160211
  Receipt Date: 20160211
  Transmission Date: 20160526
  Serious: No
  Sender: FDA-Public Use
  Company Number: US-SMITH AND NEPHEW, INC-2015SMT00421

PATIENT
  Sex: Female
  Weight: 63.49 kg

DRUGS (3)
  1. SIMVASTATIN. [Concomitant]
     Active Substance: SIMVASTATIN
     Dosage: 20 MG, UNK
  2. REGRANEX [Suspect]
     Active Substance: BECAPLERMIN
     Indication: INCISION SITE INFECTION
     Dosage: UNK
     Route: 061
     Dates: start: 201509, end: 20151013
  3. ATENOLOL. [Concomitant]
     Active Substance: ATENOLOL
     Dosage: 400 MG, UNK

REACTIONS (4)
  - Application site swelling [Not Recovered/Not Resolved]
  - Off label use [Recovered/Resolved]
  - Application site discharge [Not Recovered/Not Resolved]
  - Wound complication [Not Recovered/Not Resolved]

NARRATIVE: CASE EVENT DATE: 2015
